FAERS Safety Report 9195132 (Version 1)
Quarter: 2013Q1

REPORT INFORMATION
  Report Type: Spontaneous
  Country: US (occurrence: US)
  Receive Date: 20130328
  Receipt Date: 20130328
  Transmission Date: 20140127
  Serious: No
  Sender: FDA-Public Use
  Company Number: US-ALLERGAN-1206498US

PATIENT
  Age: 71 Year
  Sex: Female

DRUGS (4)
  1. LUMIGAN [Suspect]
     Indication: INTRAOCULAR PRESSURE INCREASED
     Dosage: 2 GTT, QPM
     Route: 047
     Dates: start: 20120413
  2. BENADRYL [Concomitant]
     Indication: SEASONAL ALLERGY
     Dosage: 25 MG, QPM
  3. BENADRYL [Concomitant]
     Indication: INSOMNIA
  4. NEXIUM [Concomitant]
     Indication: GASTRIC DISORDER
     Dosage: UNK

REACTIONS (13)
  - Memory impairment [Recovered/Resolved]
  - Fatigue [Recovered/Resolved]
  - Pain in extremity [Recovered/Resolved]
  - Influenza like illness [Recovered/Resolved]
  - Insomnia [Recovered/Resolved]
  - Muscular weakness [Recovered/Resolved]
  - Anxiety [Recovered/Resolved]
  - Stress [Recovered/Resolved]
  - Adverse event [Recovered/Resolved]
  - Confusional state [Recovered/Resolved]
  - Ocular hyperaemia [Recovered/Resolved]
  - Dry eye [Recovered/Resolved]
  - Eye irritation [Recovered/Resolved]
